FAERS Safety Report 18969751 (Version 2)
Quarter: 2021Q2

REPORT INFORMATION
  Report Type: Spontaneous
  Country: IL (occurrence: IL)
  Receive Date: 20210304
  Receipt Date: 20210416
  Transmission Date: 20210717
  Serious: Yes (Death, Other)
  Sender: FDA-Public Use
  Company Number: IL-AMGEN-ISRSP2021030288

PATIENT
  Age: 40 Year
  Sex: Female

DRUGS (2)
  1. NEULASTIM [Suspect]
     Active Substance: PEGFILGRASTIM
     Indication: PROPHYLAXIS
     Dosage: UNK
     Route: 065
  2. DOXORUBICIN [Concomitant]
     Active Substance: DOXORUBICIN
     Indication: HEPATIC ANGIOSARCOMA
     Dosage: 37.5 MILLIGRAM/SQ. METER (TWO DOSE)

REACTIONS (2)
  - Escherichia sepsis [Fatal]
  - Pancytopenia [Unknown]
